FAERS Safety Report 17102162 (Version 1)
Quarter: 2019Q4

REPORT INFORMATION
  Report Type: Spontaneous
  Country: PT (occurrence: PT)
  Receive Date: 20191202
  Receipt Date: 20191202
  Transmission Date: 20200122
  Serious: Yes (Hospitalization, Other)
  Sender: FDA-Public Use
  Company Number: PT-JNJFOC-20191134203

PATIENT
  Age: 60 Year
  Sex: Male

DRUGS (1)
  1. HALDOL DECANOATO [Suspect]
     Active Substance: HALOPERIDOL DECANOATE
     Indication: SCHIZOPHRENIA
     Route: 030
     Dates: start: 2001

REACTIONS (4)
  - Neuroleptic malignant syndrome [Unknown]
  - Seizure [Unknown]
  - Cellulitis [Unknown]
  - Electrolyte imbalance [Unknown]
